FAERS Safety Report 13371462 (Version 2)
Quarter: 2017Q2

REPORT INFORMATION
  Report Type: Report from Study
  Country: None (occurrence: GT)
  Receive Date: 20170324
  Receipt Date: 20170529
  Transmission Date: 20170830
  Serious: Yes (Hospitalization, Other)
  Sender: FDA-Public Use
  Company Number: GT-ABBVIE-17P-069-1911568-00

PATIENT
  Age: 31 Year
  Sex: Female

DRUGS (1)
  1. HUMIRA [Suspect]
     Active Substance: ADALIMUMAB
     Indication: ANKYLOSING SPONDYLITIS
     Route: 058
     Dates: start: 20120413

REACTIONS (6)
  - Polymenorrhoea [Recovered/Resolved with Sequelae]
  - Ovarian cyst [Recovered/Resolved with Sequelae]
  - Weight increased [Recovered/Resolved with Sequelae]
  - Dyspnoea [Not Recovered/Not Resolved]
  - Injection site pain [Recovered/Resolved with Sequelae]
  - Nasal congestion [Recovering/Resolving]

NARRATIVE: CASE EVENT DATE: 201606
